FAERS Safety Report 14363844 (Version 1)
Quarter: 2018Q1

REPORT INFORMATION
  Report Type: Spontaneous
  Country: CN (occurrence: CN)
  Receive Date: 20180108
  Receipt Date: 20180108
  Transmission Date: 20180509
  Serious: Yes (Other)
  Sender: FDA-Public Use
  Company Number: CN-PFIZER INC-2018003558

PATIENT
  Age: 68 Year
  Sex: Female
  Weight: 56 kg

DRUGS (6)
  1. LIPITOR [Suspect]
     Active Substance: ATORVASTATIN CALCIUM
     Indication: ARTERIOSCLEROSIS
     Dosage: 20 MG, 1X/DAY
     Route: 048
     Dates: start: 20171104, end: 20171119
  2. CEFMINOX SODIUM [Suspect]
     Active Substance: CEFMINOX SODIUM
     Indication: LUNG INFECTION
     Dosage: 1 G, 2X/DAY
     Route: 041
     Dates: start: 20171114, end: 20171119
  3. SODIUM CHLORIDE. [Concomitant]
     Active Substance: SODIUM CHLORIDE
     Dosage: 100 ML, 1X/DAY
     Route: 041
     Dates: start: 20171104, end: 20171113
  4. SODIUM CHLORIDE. [Concomitant]
     Active Substance: SODIUM CHLORIDE
     Dosage: 100 ML, 3X/DAY
     Route: 041
     Dates: start: 20171114, end: 20171119
  5. EDARAVONE [Suspect]
     Active Substance: EDARAVONE
     Indication: NUTRITIONAL SUPPLEMENTATION
     Dosage: 30 MG, 1X/DAY
     Route: 041
     Dates: start: 20171104, end: 20171119
  6. PIRACETAM AND SODIUM CHLORIDE [Concomitant]
     Indication: DEHYDRATION
     Dosage: 100 ML, 2X/DAY
     Route: 041
     Dates: start: 20171104, end: 20171122

REACTIONS (2)
  - Lung infection [Unknown]
  - Liver injury [Recovering/Resolving]

NARRATIVE: CASE EVENT DATE: 20171114
